FAERS Safety Report 5873833-2 (Version None)
Quarter: 2008Q3

REPORT INFORMATION
  Report Type: 
  Country: None (occurrence: None)
  Receive Date: 20080829
  Receipt Date: 20080819
  Transmission Date: 20090109
  Serious: Yes (Other)
  Sender: FDA-Public Use
  Company Number: 2008SP016104

PATIENT
  Sex: Female

DRUGS (9)
  1. PEG-INTRON [Suspect]
     Indication: HEPATITIS C
     Dosage: 50 MCG QW SC
     Route: 058
     Dates: start: 20000101, end: 20080801
  2. PROGRAF [Concomitant]
  3. MOLSIDOMIN [Concomitant]
  4. UDC [Concomitant]
  5. LEVOTHYROXINE SODIUM [Concomitant]
  6. REMERGIL [Concomitant]
  7. MAGNESIUM SULFATE [Concomitant]
  8. ACETYLCYSTEINE [Concomitant]
  9. TOREM [Concomitant]

REACTIONS (3)
  - LUNG DISORDER [None]
  - PULMONARY OEDEMA [None]
  - URINARY TRACT INFECTION [None]
